FAERS Safety Report 23498234 (Version 1)
Quarter: 2024Q1

REPORT INFORMATION
  Report Type: Spontaneous
  Country: US (occurrence: None)
  Receive Date: 20240207
  Receipt Date: 20240207
  Transmission Date: 20240409
  Serious: No
  Sender: FDA-Public Use
  Company Number: US-ROCHE-3325094

PATIENT
  Sex: Female

DRUGS (12)
  1. XOLAIR [Suspect]
     Active Substance: OMALIZUMAB
     Indication: Dementia
     Dosage: STRENGHT: 150 MG/ML
     Route: 058
  2. XOLAIR [Suspect]
     Active Substance: OMALIZUMAB
  3. XOLAIR [Suspect]
     Active Substance: OMALIZUMAB
  4. PREDNISONE [Concomitant]
     Active Substance: PREDNISONE
  5. ALBUTEROL SULFATE [Concomitant]
     Active Substance: ALBUTEROL SULFATE
     Dosage: NEBULIZER
  6. ALENDRONATE [Concomitant]
     Active Substance: ALENDRONATE SODIUM
  7. FAMOTIDINE [Concomitant]
     Active Substance: FAMOTIDINE
  8. FISH OIL [Concomitant]
     Active Substance: FISH OIL
  9. LORATADINE [Concomitant]
     Active Substance: LORATADINE
  10. OMEPRAZOLE [Concomitant]
     Active Substance: OMEPRAZOLE
  11. IBUPROFEN [Concomitant]
     Active Substance: IBUPROFEN
  12. MONTELUKAST [Concomitant]
     Active Substance: MONTELUKAST SODIUM

REACTIONS (3)
  - Pruritus [Not Recovered/Not Resolved]
  - Oropharyngeal pain [Not Recovered/Not Resolved]
  - Off label use [Unknown]
